FAERS Safety Report 25340033 (Version 1)
Quarter: 2025Q2

REPORT INFORMATION
  Report Type: Report from Study
  Country: US (occurrence: US)
  Receive Date: 20250521
  Receipt Date: 20250521
  Transmission Date: 20250716
  Serious: No
  Sender: SUNOVION
  Company Number: US-SMPA-2025SPA005284AA

PATIENT

DRUGS (2)
  1. ORGOVYX [Suspect]
     Active Substance: RELUGOLIX
     Indication: Prostate cancer
     Route: 048
     Dates: start: 20250402, end: 20250402
  2. ORGOVYX [Suspect]
     Active Substance: RELUGOLIX
     Dosage: 120 MG, QD
     Route: 048
     Dates: start: 20250403

REACTIONS (10)
  - Benign neoplasm [Unknown]
  - Abdominal distension [Unknown]
  - Inflammation [Unknown]
  - Impatience [Unknown]
  - Weight increased [Unknown]
  - Fatigue [Unknown]
  - Back pain [Unknown]
  - Hot flush [Unknown]
  - Blood glucose increased [Unknown]
  - Haemoglobin decreased [Unknown]
